FAERS Safety Report 7265547-1 (Version None)
Quarter: 2011Q1

REPORT INFORMATION
  Report Type: 
  Country: None (occurrence: None)
  Receive Date: 20110131
  Receipt Date: 20110125
  Transmission Date: 20110831
  Serious: Yes (Hospitalization)
  Sender: FDA-Public Use
  Company Number: FR-ROCHE-755719

PATIENT
  Sex: Male

DRUGS (6)
  1. MYCOPHENOLATE MOFETIL [Suspect]
     Dosage: FREQUENCY REPORTED AS X2.
     Route: 048
     Dates: start: 20100805
  2. TACROLIMUS [Suspect]
     Dosage: LAST DOSE PRIOR TO SAE 4 AUGUST 2010.
     Route: 048
     Dates: start: 20091204, end: 20100804
  3. PREDNISONE [Suspect]
     Route: 048
     Dates: start: 20091130
  4. MYCOPHENOLATE MOFETIL [Suspect]
     Route: 048
     Dates: start: 20091202
  5. TACROLIMUS [Suspect]
     Route: 048
     Dates: start: 20100805
  6. PREDNISONE [Suspect]
     Route: 048
     Dates: start: 20100805

REACTIONS (1)
  - TRANSPLANT REJECTION [None]
